FAERS Safety Report 19570049 (Version 3)
Quarter: 2023Q2

REPORT INFORMATION
  Report Type: Spontaneous
  Country: US (occurrence: US)
  Receive Date: 20210715
  Receipt Date: 20230412
  Transmission Date: 20230722
  Serious: Yes (Hospitalization)
  Sender: FDA-Public Use
  Company Number: US-PARI RESPIRATORY EQUIPMENT, INC.-2021PAR00039

PATIENT
  Age: 12 Year
  Sex: Male
  Weight: 50.385 kg

DRUGS (13)
  1. KITABIS PAK [Suspect]
     Active Substance: TOBRAMYCIN
     Indication: Lung disorder
     Dosage: 300/5 MG/ML VIA NEBULIZER, 2X/DAY FOR 28 DAYS ON THEN 28 DAYS OFF
     Dates: start: 20200917
  2. IBUPROFEN [Concomitant]
     Active Substance: IBUPROFEN
  3. ZOFRAN [Concomitant]
     Active Substance: ONDANSETRON HYDROCHLORIDE
  4. VITAMINS [Concomitant]
     Active Substance: VITAMINS
  5. PREDNISONE DS PK [Concomitant]
  6. CLOBAZAM [Concomitant]
     Active Substance: CLOBAZAM
  7. CLONAZEPAM RAPDIS [Concomitant]
  8. BACLOFEN [Concomitant]
     Active Substance: BACLOFEN
  9. LEVOFLOXACIN [Concomitant]
     Active Substance: LEVOFLOXACIN
  10. PEPCID [Concomitant]
     Active Substance: FAMOTIDINE
  11. ZYRTEC [Concomitant]
     Active Substance: CETIRIZINE HYDROCHLORIDE
  12. KEPPRA [Concomitant]
     Active Substance: LEVETIRACETAM
  13. ZENPEP [Concomitant]
     Active Substance: PANCRELIPASE AMYLASE\PANCRELIPASE LIPASE\PANCRELIPASE PROTEASE

REACTIONS (6)
  - Hospitalisation [Unknown]
  - Pneumonia [Unknown]
  - Respiratory distress [Unknown]
  - Urinary tract infection [Unknown]
  - Upper respiratory tract infection [Unknown]
  - Off label use [Unknown]

NARRATIVE: CASE EVENT DATE: 20200917
